FAERS Safety Report 6779938-6 (Version None)
Quarter: 2010Q2

REPORT INFORMATION
  Report Type: 
  Country: None (occurrence: None)
  Receive Date: 20100618
  Receipt Date: 20100611
  Transmission Date: 20101027
  Serious: Yes (Other)
  Sender: FDA-Public Use
  Company Number: CA-PFIZER INC-2010054888

PATIENT
  Age: 45 Year
  Sex: Female

DRUGS (4)
  1. DILANTIN [Suspect]
     Dosage: 60 MG (2 X 30MG)
     Dates: start: 20090401
  2. DILANTIN [Suspect]
     Dosage: 100 MG, UNK
  3. RISPERIDONE [Suspect]
     Dosage: LOW DOSE
  4. RISPERDAL [Concomitant]
     Dosage: 0.5 MG,

REACTIONS (1)
  - AGITATION [None]
